FAERS Safety Report 14612643 (Version 22)
Quarter: 2024Q4

REPORT INFORMATION
  Report Type: Report from Study
  Country: BR (occurrence: BR)
  Receive Date: 20180308
  Receipt Date: 20241217
  Transmission Date: 20250115
  Serious: Yes (Hospitalization, Other)
  Sender: GLAXOSMITHKLINE
  Company Number: BR-GLAXOSMITHKLINE-BR2016GSK167250

PATIENT

DRUGS (10)
  1. BELIMUMAB [Suspect]
     Active Substance: BELIMUMAB
     Indication: Systemic lupus erythematosus
     Dosage: UNK 760 MG
     Route: 042
     Dates: start: 20160826
  2. BELIMUMAB [Suspect]
     Active Substance: BELIMUMAB
     Dosage: 120 MG UNK 3 BENLYSTA BOTTLES
     Route: 042
  3. BELIMUMAB [Suspect]
     Active Substance: BELIMUMAB
     Dosage: 400 MG UNK 1 BOTTLE
  4. BELIMUMAB [Suspect]
     Active Substance: BELIMUMAB
     Dosage: 120 MG
     Route: 042
  5. BELIMUMAB [Suspect]
     Active Substance: BELIMUMAB
     Dosage: 640 MG
     Route: 042
  6. BELIMUMAB [Suspect]
     Active Substance: BELIMUMAB
     Dosage: UNK 2X120 MG 1X400 MG
     Route: 042
  7. BELIMUMAB [Suspect]
     Active Substance: BELIMUMAB
     Dosage: 640 MG (1X 400 MG, 2X120 MG)
     Route: 042
  8. PREDNISONE [Concomitant]
     Active Substance: PREDNISONE
     Indication: Product used for unknown indication
     Dosage: UNK
  9. XARELTO [Concomitant]
     Active Substance: RIVAROXABAN
     Indication: Product used for unknown indication
     Dosage: 20 MG
  10. RIVAROXABAN [Concomitant]
     Active Substance: RIVAROXABAN
     Indication: Product used for unknown indication
     Dosage: UNK

REACTIONS (29)
  - Hysterectomy [Recovered/Resolved]
  - Thrombosis [Unknown]
  - Lupus nephritis [Unknown]
  - Nephritis [Unknown]
  - Disease recurrence [Not Recovered/Not Resolved]
  - Arthralgia [Not Recovered/Not Resolved]
  - Dermatitis [Unknown]
  - Urticaria [Not Recovered/Not Resolved]
  - Malaise [Unknown]
  - Lung disorder [Unknown]
  - Cholecystectomy [Recovered/Resolved]
  - Cough [Unknown]
  - Rhinorrhoea [Unknown]
  - Ear pain [Unknown]
  - Oropharyngeal pain [Unknown]
  - Sinusitis [Unknown]
  - Pharyngeal inflammation [Unknown]
  - Gastrointestinal infection [Recovered/Resolved]
  - Dengue fever [Recovered/Resolved]
  - Diarrhoea [Recovered/Resolved]
  - Abdominal pain [Recovered/Resolved]
  - Vomiting [Recovered/Resolved]
  - Headache [Recovered/Resolved]
  - Urinary tract infection [Recovered/Resolved]
  - Product prescribing error [Unknown]
  - Therapeutic response unexpected [Unknown]
  - Circumstance or information capable of leading to medication error [Unknown]
  - Inappropriate schedule of product administration [Unknown]
  - Product dose omission issue [Unknown]

NARRATIVE: CASE EVENT DATE: 20220101
